FAERS Safety Report 6252847-7 (Version None)
Quarter: 2009Q2

REPORT INFORMATION
  Report Type: 
  Country: None (occurrence: None)
  Receive Date: 20090629
  Receipt Date: 20090623
  Transmission Date: 20091009
  Serious: Yes (Hospitalization)
  Sender: FDA-Public Use
  Company Number: 2009-GWUS-0434

PATIENT
  Age: 78 Year
  Sex: Male

DRUGS (5)
  1. ALDARA [Suspect]
     Indication: SKIN LESION
     Dosage: EVERY OTHER DAY - TOPICAL; APPLICATION - EVERY OTHER DAY - TOPICAL
     Route: 061
     Dates: start: 20080601, end: 20080101
  2. ALDARA [Suspect]
     Indication: SKIN LESION
     Dosage: EVERY OTHER DAY - TOPICAL; APPLICATION - EVERY OTHER DAY - TOPICAL
     Route: 061
     Dates: start: 20090601
  3. LIPITOR [Concomitant]
  4. HYDROCHLORIDE (CARDIZEM) [Concomitant]
  5. ASPIRIN [Concomitant]

REACTIONS (2)
  - METAL POISONING [None]
  - PNEUMONIA [None]
